FAERS Safety Report 25236946 (Version 1)
Quarter: 2025Q2

REPORT INFORMATION
  Report Type: Spontaneous
  Country: US (occurrence: US)
  Receive Date: 20250424
  Receipt Date: 20250424
  Transmission Date: 20250717
  Serious: No
  Sender: AMGEN
  Company Number: US-AMGEN-USASP2025078978

PATIENT
  Age: 68 Year
  Sex: Male

DRUGS (1)
  1. REPATHA [Suspect]
     Active Substance: EVOLOCUMAB
     Indication: Product used for unknown indication
     Dosage: UNK, Q2WK
     Route: 058
     Dates: end: 20250315

REACTIONS (4)
  - Arthralgia [Recovering/Resolving]
  - Gait disturbance [Unknown]
  - Mobility decreased [Unknown]
  - Low density lipoprotein decreased [Unknown]

NARRATIVE: CASE EVENT DATE: 20250413
